FAERS Safety Report 10149289 (Version 2)
Quarter: 2014Q2

REPORT INFORMATION
  Report Type: Spontaneous
  Country: CA (occurrence: CA)
  Receive Date: 20140502
  Receipt Date: 20140502
  Transmission Date: 20141212
  Serious: Yes (Other)
  Sender: FDA-Public Use
  Company Number: CA-009507513-1201USA01454

PATIENT
  Age: 52 Year
  Sex: Male

DRUGS (12)
  1. ISENTRESS [Suspect]
     Dosage: 400 MG, 2 EVERY 1 DAYS
     Route: 048
  2. ISENTRESS [Suspect]
     Dosage: 2 EVERY 1 DAYS
     Route: 048
  3. ISENTRESS [Suspect]
     Dosage: 400 MG, 2 EVERY 1 DAYS
     Route: 048
  4. FUZEON [Suspect]
     Dosage: 180 MG, 1 EVERY 1 DAYS
     Route: 058
  5. PREZISTA [Suspect]
     Dosage: 1200 MG, 1 EVERY 1 DAYS
     Route: 048
  6. PREZISTA [Suspect]
     Dosage: 600 MG, 1 EVERY 1 DAYS
     Route: 048
  7. RITONAVIR [Suspect]
     Dosage: 200 MG, 1 EVERY 1 DAYS
     Route: 065
  8. ZIAGEN [Suspect]
     Dosage: 600 MG, 1 EVERY 1 DAYS
     Route: 065
  9. ASPIRIN [Concomitant]
     Route: 065
  10. BACTRIM [Concomitant]
     Route: 065
  11. IMODIUM [Concomitant]
     Route: 065
  12. ACETAMINOPHEN [Concomitant]
     Route: 065

REACTIONS (3)
  - Ecchymosis [Unknown]
  - Accidental overdose [Unknown]
  - Underdose [Unknown]
